FAERS Safety Report 8673314 (Version 3)
Quarter: 2013Q2

REPORT INFORMATION
  Report Type: Report from Study
  Country: DE (occurrence: DE)
  Receive Date: 20120719
  Receipt Date: 20130625
  Transmission Date: 20140414
  Serious: Yes (Other)
  Sender: FDA-Public Use
  Company Number: PHHY2012DE059930

PATIENT
  Age: 72 Year
  Sex: Male
  Weight: 65 kg

DRUGS (3)
  1. AMN107 [Suspect]
     Indication: CHRONIC MYELOID LEUKAEMIA
     Dosage: 600 MG, DAILY
     Route: 048
     Dates: start: 20120430, end: 20120704
  2. PENTALONG [Concomitant]
     Indication: CORONARY ARTERY DISEASE
     Dosage: 50 MG, DAILY
     Dates: start: 20101022
  3. NITRANGIN [Concomitant]
     Indication: CARDIOVASCULAR DISORDER
     Dates: start: 20101022

REACTIONS (2)
  - Electrocardiogram QT prolonged [Recovering/Resolving]
  - Gene mutation identification test positive [Not Recovered/Not Resolved]
